FAERS Safety Report 6245871 (Version 4)
Quarter: 2018Q4

REPORT INFORMATION
  Report Type: Spontaneous
  Country: JP (occurrence: JP)
  Receive Date: 20070227
  Receipt Date: 20181113
  Transmission Date: 20190205
  Serious: Yes (Death, Other)
  Sender: FDA-Public Use
  Company Number: PHBS2007JP03314

PATIENT
  Age: 59 Year
  Sex: Female

DRUGS (2)
  1. GLIVEC [Suspect]
     Active Substance: IMATINIB MESYLATE
     Indication: CHLOROMA
     Dosage: 300 MG, QD
     Route: 048
     Dates: start: 200504, end: 200507
  2. PREDNISOLONE. [Concomitant]
     Active Substance: PREDNISOLONE
     Indication: MYELOFIBROSIS
     Dosage: 10 MG, QD
     Route: 065
     Dates: start: 200408

REACTIONS (8)
  - Pneumonia [Fatal]
  - Chloroma [Unknown]
  - Hepatosplenomegaly [Unknown]
  - Neoplasm skin [Unknown]
  - Pathological fracture [Unknown]
  - Pyrexia [Unknown]
  - C-reactive protein increased [Unknown]
  - Hypercalcaemia [Unknown]

NARRATIVE: CASE EVENT DATE: 20050427
